FAERS Safety Report 14079025 (Version 2)
Quarter: 2018Q2

REPORT INFORMATION
  Report Type: Spontaneous
  Country: US (occurrence: US)
  Receive Date: 20171012
  Receipt Date: 20180627
  Transmission Date: 20180711
  Serious: Yes (Disabling, Other)
  Sender: FDA-Public Use
  Company Number: US-WEST-WARD PHARMACEUTICALS CORP.-US-H14001-17-03762

PATIENT
  Sex: Male

DRUGS (10)
  1. BUPIVACAINE. [Concomitant]
     Active Substance: BUPIVACAINE
     Indication: PAIN
     Route: 037
  2. METHADONE [Concomitant]
     Active Substance: METHADONE HYDROCHLORIDE
     Route: 065
     Dates: start: 20121129, end: 20130411
  3. MORPHINE [Suspect]
     Active Substance: MORPHINE
     Indication: SPINAL PAIN
     Route: 037
     Dates: start: 2004
  4. METHADONE [Concomitant]
     Active Substance: METHADONE HYDROCHLORIDE
     Indication: PAIN
     Route: 065
     Dates: start: 2012
  5. MORPHINE [Suspect]
     Active Substance: MORPHINE
     Route: 037
     Dates: start: 2012, end: 20121129
  6. HYDROMORPHINE [Concomitant]
     Active Substance: HYDROMORPHONE
     Indication: PAIN
     Route: 048
  7. OXYCODONE [Concomitant]
     Active Substance: OXYCODONE
     Indication: PAIN
     Route: 048
  8. HYDROCODONE [Concomitant]
     Active Substance: HYDROCODONE
     Indication: PAIN
     Route: 048
  9. MORPHINE [Suspect]
     Active Substance: MORPHINE
     Route: 037
     Dates: start: 2006
  10. METHADONE [Concomitant]
     Active Substance: METHADONE HYDROCHLORIDE
     Route: 065
     Dates: start: 2012

REACTIONS (9)
  - Hypoxia [Unknown]
  - Pain [Recovered/Resolved]
  - Dysstasia [Recovering/Resolving]
  - Urinary incontinence [Unknown]
  - Agitation [Recovered/Resolved]
  - Gait disturbance [Recovering/Resolving]
  - Confusional state [Recovered/Resolved]
  - Delirium [Recovered/Resolved]
  - Anal incontinence [Unknown]
